FAERS Safety Report 20957873 (Version 1)
Quarter: 2022Q2

REPORT INFORMATION
  Report Type: Spontaneous
  Country: US (occurrence: US)
  Receive Date: 20220614
  Receipt Date: 20220614
  Transmission Date: 20220721
  Serious: No
  Sender: FDA-Public Use
  Company Number: US-LUPIN PHARMACEUTICALS INC.-2022-08561

PATIENT
  Age: 92 Year
  Sex: Male

DRUGS (2)
  1. AZACITIDINE [Suspect]
     Active Substance: AZACITIDINE
     Indication: Acute myeloid leukaemia
     Dosage: 75 MILLIGRAM/SQ. METER (ON DAY 1-7)
     Route: 042
  2. VENETOCLAX [Suspect]
     Active Substance: VENETOCLAX
     Indication: Acute myeloid leukaemia
     Dosage: 400 MG, QD (ON DAYS 1-21, AND ADDITIONAL THERAPY FOR 14 DAYS)
     Route: 065

REACTIONS (5)
  - Nausea [Unknown]
  - Weight decreased [Unknown]
  - Physical deconditioning [Unknown]
  - Fatigue [Unknown]
  - Off label use [Unknown]
